FAERS Safety Report 6369939-4 (Version None)
Quarter: 2009Q3

REPORT INFORMATION
  Report Type: 
  Country: None (occurrence: None)
  Receive Date: 20090923
  Receipt Date: 20070530
  Transmission Date: 20100115
  Serious: Yes (Hospitalization, Other)
  Sender: FDA-Public Use
  Company Number: US-ASTRAZENECA-2006UW08017

PATIENT
  Age: 48 Year
  Sex: Female

DRUGS (11)
  1. SEROQUEL [Suspect]
     Indication: PSYCHOTIC DISORDER
     Route: 048
     Dates: start: 19900101, end: 20000101
  2. SEROQUEL [Suspect]
     Dosage: 25MG -500MG
     Route: 048
     Dates: start: 20010104
  3. GLIPIZIDE [Concomitant]
     Dosage: 5MG - 10MG
     Dates: start: 20010518
  4. AMOXICILLIN [Concomitant]
     Dates: start: 20051114
  5. TRAZODONE [Concomitant]
     Dosage: 50MG - 100MG
     Dates: start: 20010523
  6. LIPITOR [Concomitant]
     Dosage: 20MG - 40 MG
     Dates: start: 20020525
  7. LORAZEPAM [Concomitant]
     Dosage: 0.5MG -10MG
     Dates: start: 20010609
  8. LITHIUM [Concomitant]
     Dates: start: 19940928
  9. PREMARIN [Concomitant]
     Dosage: 0.625MG -1.25MG
     Dates: start: 20011228
  10. HYDROCODONE BITARTRATE AND ACETAMINOPHEN [Concomitant]
     Dosage: 5MG /500MG
     Dates: start: 20011019
  11. ZOCOR [Concomitant]
     Dosage: 20MG-40MG
     Dates: start: 19991111

REACTIONS (3)
  - DIABETES MELLITUS [None]
  - DIABETES MELLITUS INADEQUATE CONTROL [None]
  - TARDIVE DYSKINESIA [None]
